FAERS Safety Report 25514918 (Version 2)
Quarter: 2025Q3

REPORT INFORMATION
  Report Type: Spontaneous
  Country: JP (occurrence: JP)
  Receive Date: 20250703
  Receipt Date: 20250704
  Transmission Date: 20251021
  Serious: Yes (Other)
  Sender: BAUSCH AND LOMB
  Company Number: JP-BAUSCH-BL-2025-007906

PATIENT
  Age: 49 Year
  Sex: Female

DRUGS (10)
  1. DEXAMETHASONE [Suspect]
     Active Substance: DEXAMETHASONE
     Indication: Prophylaxis of nausea and vomiting
     Route: 065
  2. PEGFILGRASTIM [Suspect]
     Active Substance: PEGFILGRASTIM
     Indication: Colony stimulating factor therapy
     Route: 065
  3. PACLITAXEL [Concomitant]
     Active Substance: PACLITAXEL
     Indication: Breast cancer stage III
  4. PACLITAXEL [Concomitant]
     Active Substance: PACLITAXEL
     Indication: Hormone receptor positive HER2 negative breast cancer
  5. EPIRUBICIN [Concomitant]
     Active Substance: EPIRUBICIN
     Indication: Breast cancer stage III
  6. EPIRUBICIN [Concomitant]
     Active Substance: EPIRUBICIN
     Indication: Hormone receptor positive HER2 negative breast cancer
  7. EPIRUBICIN [Concomitant]
     Active Substance: EPIRUBICIN
     Indication: Neoadjuvant therapy
  8. CYCLOPHOSPHAMIDE [Concomitant]
     Active Substance: CYCLOPHOSPHAMIDE
     Indication: Breast cancer stage III
  9. CYCLOPHOSPHAMIDE [Concomitant]
     Active Substance: CYCLOPHOSPHAMIDE
     Indication: Hormone receptor positive HER2 negative breast cancer
  10. CYCLOPHOSPHAMIDE [Concomitant]
     Active Substance: CYCLOPHOSPHAMIDE
     Indication: Neoadjuvant therapy

REACTIONS (4)
  - Acute kidney injury [Unknown]
  - Leukocytosis [Unknown]
  - Leukopenia [Unknown]
  - Cell death [Unknown]
